FAERS Safety Report 23769904 (Version 1)
Quarter: 2024Q2

REPORT INFORMATION
  Report Type: Spontaneous
  Country: US (occurrence: US)
  Receive Date: 20240422
  Receipt Date: 20240422
  Transmission Date: 20240715
  Serious: No
  Sender: FDA-Public Use
  Company Number: US-MYLANLABS-2024M1031640

PATIENT
  Sex: Female
  Weight: 58.95 kg

DRUGS (3)
  1. AMLODIPINE [Suspect]
     Active Substance: AMLODIPINE BESYLATE
     Indication: Hypertension
     Dosage: 5 MILLIGRAM, QD (5 ML ONE A DAY)
     Route: 065
     Dates: start: 20211130
  2. PREDNISONE [Concomitant]
     Active Substance: PREDNISONE
     Indication: Inflammation
     Dosage: 2.5 ONE A DAY
     Route: 065
     Dates: start: 20230331
  3. ESZOPICLONE [Concomitant]
     Active Substance: ESZOPICLONE
     Indication: Sleep disorder
     Dosage: 2 MILLIGRAM, QD (EVERY NIGHT)
     Route: 065
     Dates: start: 20220930

REACTIONS (2)
  - Ocular hyperaemia [Unknown]
  - Psoriasis [Unknown]
